FAERS Safety Report 5620881-3 (Version None)
Quarter: 2008Q1

REPORT INFORMATION
  Report Type: 
  Country: None (occurrence: None)
  Receive Date: 20080208
  Receipt Date: 20080128
  Transmission Date: 20080703
  Serious: Yes (Disabling, Other)
  Sender: FDA-Public Use
  Company Number: FR-PFIZER INC-2007108873

PATIENT
  Sex: Female
  Weight: 62 kg

DRUGS (7)
  1. CHANTIX [Suspect]
     Indication: SMOKING CESSATION THERAPY
     Route: 048
     Dates: start: 20070901, end: 20071220
  2. EFFEXOR [Concomitant]
     Indication: DEPRESSION
     Route: 048
  3. STILNOX [Concomitant]
     Indication: DEPRESSION
     Route: 048
  4. VALIUM [Concomitant]
     Indication: DEPRESSION
     Dosage: DAILY DOSE:100MG
     Route: 048
  5. TERCIAN [Concomitant]
     Indication: DEPRESSION
     Dosage: TEXT:4 DROPS PER DAY
     Route: 048
  6. ESPERAL [Concomitant]
     Indication: DEPRESSION
     Route: 048
     Dates: start: 20060101
  7. ALL OTHER THERAPEUTIC PRODUCTS [Concomitant]

REACTIONS (5)
  - ASTHENIA [None]
  - CONSTIPATION [None]
  - FATIGUE [None]
  - HYPOTHYROIDISM [None]
  - WEIGHT INCREASED [None]
